FAERS Safety Report 21878703 (Version 1)
Quarter: 2023Q1

REPORT INFORMATION
  Report Type: Spontaneous
  Country: US (occurrence: None)
  Receive Date: 20230118
  Receipt Date: 20230118
  Transmission Date: 20230417
  Serious: Yes (Hospitalization)
  Sender: FDA-Public Use
  Company Number: 2023A006906

PATIENT
  Age: 54 Year
  Sex: Female
  Weight: 113.4 kg

DRUGS (2)
  1. SYMBICORT [Suspect]
     Active Substance: BUDESONIDE\FORMOTEROL FUMARATE DIHYDRATE
     Indication: Asthma
     Dosage: 2 PUFFS TWICE A DAY160UG/MG TWO TIMES A DAY
     Route: 055
     Dates: start: 2013, end: 201701
  2. SYMBICORT [Suspect]
     Active Substance: BUDESONIDE\FORMOTEROL FUMARATE DIHYDRATE
     Indication: Asthma
     Dosage: 2 PUFFS TWICE A DAY160UG/MG TWO TIMES A DAY
     Route: 055
     Dates: start: 201712

REACTIONS (6)
  - Septic shock [Unknown]
  - Critical illness [Unknown]
  - Product use issue [Unknown]
  - Product dose omission issue [Unknown]
  - Device use issue [Unknown]
  - Device malfunction [Unknown]

NARRATIVE: CASE EVENT DATE: 20150101
